FAERS Safety Report 7681113-8 (Version None)
Quarter: 2011Q3

REPORT INFORMATION
  Report Type: 
  Country: None (occurrence: None)
  Receive Date: 20110812
  Receipt Date: 20110810
  Transmission Date: 20111222
  Serious: Yes (Other)
  Sender: FDA-Public Use
  Company Number: US-PFIZER INC-2011184537

PATIENT
  Sex: Female
  Weight: 86 kg

DRUGS (5)
  1. LYRICA [Suspect]
     Dosage: 50 MG, 3X/DAY
     Route: 048
     Dates: start: 20110801
  2. VISTARIL [Concomitant]
     Dosage: UNK
  3. LYRICA [Suspect]
     Indication: FIBROMYALGIA
     Dosage: 50 MG, 2X/DAY
     Route: 048
     Dates: start: 20110801, end: 20110801
  4. HYDROCHLOROTHIAZIDE [Concomitant]
     Dosage: UNK
  5. LYRICA [Suspect]
     Indication: BACK DISORDER
     Dosage: 50 MG, 1X/DAY
     Route: 048
     Dates: start: 20110101, end: 20110801

REACTIONS (8)
  - FEELING COLD [None]
  - FEELING ABNORMAL [None]
  - WHEEZING [None]
  - WEIGHT INCREASED [None]
  - SOMNOLENCE [None]
  - FEELING DRUNK [None]
  - EYE DISORDER [None]
  - DYSPHONIA [None]
